FAERS Safety Report 9198552 (Version 2)
Quarter: 2013Q2

REPORT INFORMATION
  Report Type: Spontaneous
  Country: ZA (occurrence: ZA)
  Receive Date: 20130329
  Receipt Date: 20130513
  Transmission Date: 20140414
  Serious: Yes (Hospitalization)
  Sender: FDA-Public Use
  Company Number: ZA-ELI_LILLY_AND_COMPANY-ZA201303006358

PATIENT
  Sex: Female
  Weight: 62 kg

DRUGS (8)
  1. HUMALOG LISPRO [Suspect]
     Indication: DIABETES MELLITUS
     Dosage: 20 U, BID
     Route: 058
     Dates: start: 2012
  2. HUMALOG LISPRO [Suspect]
     Dosage: 8 U, EACH EVENING
     Route: 058
     Dates: start: 2012
  3. HUMALOG LISPRO [Suspect]
     Dosage: 10 U, BID
  4. HUMULIN NPH [Suspect]
     Indication: DIABETES MELLITUS
     Dosage: 42 U, EACH EVENING
     Route: 058
     Dates: start: 2012
  5. CLOXIN [Concomitant]
     Indication: INFECTION
     Dosage: 1 DF, TID
     Route: 048
     Dates: start: 20130313
  6. ADCO-SIMVASTATIN [Concomitant]
     Indication: BLOOD CHOLESTEROL
     Dosage: 1 DF, QD
     Route: 048
     Dates: start: 2012
  7. ADCO-RETIC [Concomitant]
     Indication: HYPERTENSION
     Dosage: 1 DF, QD
     Route: 048
     Dates: start: 2012
  8. DISPRIN [Concomitant]
     Indication: ANTICOAGULANT THERAPY
     Dosage: 1 DF, QD
     Route: 048
     Dates: start: 2012

REACTIONS (1)
  - Haemorrhoidal haemorrhage [Recovered/Resolved]
